FAERS Safety Report 14328485 (Version 1)
Quarter: 2017Q4

REPORT INFORMATION
  Report Type: Spontaneous
  Country: US (occurrence: US)
  Receive Date: 20171227
  Receipt Date: 20171227
  Transmission Date: 20180321
  Serious: No
  Sender: FDA-Public Use
  Company Number: None

PATIENT
  Age: 68 Year
  Sex: Female
  Weight: 69.75 kg

DRUGS (8)
  1. CEPHALEXIN 500MG CAPS (NDC:42043-0141-05) [Suspect]
     Active Substance: CEPHALEXIN
     Indication: INFECTION PROPHYLAXIS
     Dosage: ?          QUANTITY:1 CAPSULE(S);?
     Route: 048
     Dates: start: 20171219, end: 20171222
  2. KETOCONAZOLE. [Concomitant]
     Active Substance: KETOCONAZOLE
  3. BABY ASPIRIN [Concomitant]
     Active Substance: ASPIRIN
  4. OMEGA-3 FISH OIL [Concomitant]
     Active Substance: FISH OIL\OMEGA-3 FATTY ACIDS
  5. VITAMIN C [Concomitant]
     Active Substance: ASCORBIC ACID
  6. FLUOCINONIDE. [Concomitant]
     Active Substance: FLUOCINONIDE
  7. VITAMIN D3 [Concomitant]
     Active Substance: CHOLECALCIFEROL
  8. CALCIUM CARBONATE. [Concomitant]
     Active Substance: CALCIUM CARBONATE

REACTIONS (2)
  - Middle insomnia [None]
  - Thirst [None]

NARRATIVE: CASE EVENT DATE: 20171221
